FAERS Safety Report 4740676-2 (Version None)
Quarter: 2005Q3

REPORT INFORMATION
  Report Type: 
  Country: None (occurrence: None)
  Receive Date: 20050801
  Receipt Date: 20050629
  Transmission Date: 20060218
  Serious: No
  Sender: FDA-Public Use
  Company Number: 2005PV000217

PATIENT
  Age: 53 Year
  Sex: Female
  Weight: 131.9967 kg

DRUGS (12)
  1. BYETTA [Suspect]
     Indication: DIABETES MELLITUS NON-INSULIN-DEPENDENT
     Dosage: 5 UG; BID; SC
     Route: 058
     Dates: start: 20050629
  2. ALLEGRA [Concomitant]
  3. TRICOR [Concomitant]
  4. GLYBURIDE [Concomitant]
  5. COZAAR [Concomitant]
  6. ZETIA [Concomitant]
  7. CALCIUM GLUCONATE [Concomitant]
  8. ASCORBIC ACID [Concomitant]
  9. MAGNESIUM [Concomitant]
  10. CRANBERRY [Concomitant]
  11. VITAMIN B-12 [Concomitant]
  12. POTASSIUM CHLORIDE [Concomitant]

REACTIONS (2)
  - ARTHRALGIA [None]
  - THROAT TIGHTNESS [None]
